FAERS Safety Report 15668326 (Version 1)
Quarter: 2018Q4

REPORT INFORMATION
  Report Type: Spontaneous
  Country: GR (occurrence: GR)
  Receive Date: 20181129
  Receipt Date: 20181129
  Transmission Date: 20190205
  Serious: Yes (Hospitalization, Other)
  Sender: FDA-Public Use
  Company Number: GR-AUROBINDO-AUR-APL-2014-04824

PATIENT
  Age: 74 Year
  Sex: Female

DRUGS (6)
  1. VITAMIN D                          /00107901/ [Concomitant]
     Active Substance: ERGOCALCIFEROL
     Indication: OSTEOPOROSIS POSTMENOPAUSAL
     Dosage: DAILY VITAMIN D SUPPLEMENTATION ()
  2. ALENDRONATE AUROBINDO 70 MG TABLETS [Suspect]
     Active Substance: ALENDRONIC ACID
     Indication: OSTEOPOROSIS POSTMENOPAUSAL
     Dosage: 70 MG,UNK,
     Route: 065
  3. DENOSUMAB [Suspect]
     Active Substance: DENOSUMAB
     Indication: OSTEOPOROSIS POSTMENOPAUSAL
     Dosage: DOSAGE NOT STATED ()
     Route: 065
  4. CALCIUM [Concomitant]
     Active Substance: CALCIUM
     Indication: OSTEOPOROSIS POSTMENOPAUSAL
     Dosage: UNK UNK,UNK,
     Route: 065
  5. VITAMIN D                          /00107901/ [Concomitant]
     Active Substance: ERGOCALCIFEROL
     Indication: ROUTINE HEALTH MAINTENANCE
     Dosage: UNK UNK,UNK,
     Route: 065
  6. CALCIUM [Concomitant]
     Active Substance: CALCIUM
     Indication: OSTEOPOROSIS POSTMENOPAUSAL
     Dosage: DAILY CALCIUM

REACTIONS (4)
  - Femur fracture [Recovered/Resolved]
  - Weight bearing difficulty [Recovering/Resolving]
  - Atypical femur fracture [Recovered/Resolved]
  - Pain in extremity [Recovering/Resolving]
